FAERS Safety Report 9718064 (Version 2)
Quarter: 2013Q4

REPORT INFORMATION
  Report Type: Spontaneous
  Country: CH (occurrence: CH)
  Receive Date: 20131127
  Receipt Date: 20131202
  Transmission Date: 20140711
  Serious: Yes (Death, Hospitalization, Other)
  Sender: FDA-Public Use
  Company Number: CH-PFIZER INC-2013336831

PATIENT
  Age: 51 Year
  Sex: Male

DRUGS (1)
  1. SUTENT [Suspect]
     Indication: GASTROINTESTINAL STROMAL TUMOUR
     Dosage: 50 MG, 1X/DAY FROM DAY 1-28, FOLLOWED BY A PERIOD WITHOUT TREATMENT UNTIL DAY 42
     Dates: start: 201209

REACTIONS (13)
  - Disease progression [Fatal]
  - Gastrointestinal stromal tumour [Fatal]
  - Road traffic accident [Unknown]
  - Depression [Recovering/Resolving]
  - Suicidal ideation [Unknown]
  - Tooth disorder [Unknown]
  - Asthenia [Recovering/Resolving]
  - Skin lesion [Recovering/Resolving]
  - Hair colour changes [Recovering/Resolving]
  - Gingivitis [Recovering/Resolving]
  - Dysgeusia [Recovering/Resolving]
  - Weight decreased [Unknown]
  - Mucosal inflammation [Unknown]
